FAERS Safety Report 5039340-4 (Version None)
Quarter: 2006Q2

REPORT INFORMATION
  Report Type: 
  Country: None (occurrence: None)
  Receive Date: 20060629
  Receipt Date: 20060530
  Transmission Date: 20061013
  Serious: Yes (Other)
  Sender: FDA-Public Use
  Company Number: US-SANOFI-SYNTHELABO-A03200603672

PATIENT
  Sex: Female

DRUGS (10)
  1. INDERAL [Concomitant]
     Dosage: UNK
     Route: 048
  2. ESKALITH [Concomitant]
     Dosage: UNK
     Route: 048
  3. LEVOTHYROXINE SODIUM [Concomitant]
     Dosage: UNK
     Route: 048
  4. BENZTROPINE MESYLATE [Concomitant]
     Dosage: UNK
     Route: 048
  5. XENICAL [Concomitant]
     Dosage: UNK
     Route: 048
  6. AMBIEN [Suspect]
     Indication: DRUG USE FOR UNKNOWN INDICATION
     Route: 048
  7. ZYPREXA [Concomitant]
     Dosage: UNK
     Route: 048
     Dates: start: 20030101
  8. SERZONE [Concomitant]
     Dosage: UNK
     Route: 048
     Dates: start: 19970101
  9. HALCION [Concomitant]
     Dosage: UNK
     Route: 048
  10. DIAZEPAM [Concomitant]
     Dosage: UNK
     Route: 048

REACTIONS (14)
  - AMNESIA [None]
  - EATING DISORDER [None]
  - FALL [None]
  - HALLUCINATION, AUDITORY [None]
  - HAND FRACTURE [None]
  - HEAD DISCOMFORT [None]
  - HEAD INJURY [None]
  - MENTAL DISORDER [None]
  - NECK PAIN [None]
  - ROAD TRAFFIC ACCIDENT [None]
  - ROTATOR CUFF SYNDROME [None]
  - SLEEP WALKING [None]
  - SPINAL FRACTURE [None]
  - THYROID DISORDER [None]
